FAERS Safety Report 7432060-8 (Version None)
Quarter: 2011Q2

REPORT INFORMATION
  Report Type: 
  Country: None (occurrence: None)
  Receive Date: 20110422
  Receipt Date: 20110415
  Transmission Date: 20111010
  Serious: Yes (Other)
  Sender: FDA-Public Use
  Company Number: US-ELI_LILLY_AND_COMPANY-US201102003967

PATIENT
  Sex: Female
  Weight: 97.052 kg

DRUGS (11)
  1. BYETTA [Suspect]
     Indication: TYPE 2 DIABETES MELLITUS
     Dosage: 5 UG, 2/D
     Route: 058
  2. COZAAR [Concomitant]
     Indication: HYPERTENSION
     Dosage: 50 MG, UNK
     Route: 048
  3. SINGULAIR [Concomitant]
     Indication: BRONCHIAL HYPERREACTIVITY
     Dosage: 10 MG, UNK
     Route: 048
  4. SULFAMETHOXAZOLE [Concomitant]
     Indication: PRODUCT USED FOR UNKNOWN INDICATION
  5. TRAZODONE HCL [Concomitant]
     Indication: DEPRESSION
     Dosage: 50 MG, UNK
     Route: 048
  6. METHADONE [Concomitant]
     Indication: BACK PAIN
     Dosage: 10 MG, UNK
     Route: 048
  7. BYETTA [Suspect]
     Dosage: 5 UG, 2/D
     Route: 058
     Dates: start: 20110203, end: 20110208
  8. TRIAMTERENE AND HYDROCHLOROTHIAZIDE [Concomitant]
     Indication: HYPERTENSION
     Dosage: UNK
     Route: 048
  9. CYMBALTA [Concomitant]
     Indication: DEPRESSION
     Dosage: 60 MG, UNK
     Route: 048
  10. ALPRAZOLAM [Concomitant]
     Indication: GENERALISED ANXIETY DISORDER
     Dosage: 0.5 MG, UNK
     Route: 048
  11. VICTOZA [Concomitant]
     Indication: TYPE 2 DIABETES MELLITUS
     Dosage: UNK

REACTIONS (6)
  - BLOOD GLUCOSE DECREASED [None]
  - OVERDOSE [None]
  - BLOOD GLUCOSE INCREASED [None]
  - RASH PRURITIC [None]
  - RASH ERYTHEMATOUS [None]
  - PHARYNGEAL OEDEMA [None]
